FAERS Safety Report 19901346 (Version 3)
Quarter: 2025Q4

REPORT INFORMATION
  Report Type: Spontaneous
  Country: US (occurrence: US)
  Receive Date: 20210929
  Receipt Date: 20251218
  Transmission Date: 20260117
  Serious: Yes (Other)
  Sender: MERCK SHARP & DOHME LLC
  Company Number: US-009507513-2109USA005371

PATIENT
  Age: 72 Year
  Sex: Male

DRUGS (3)
  1. KEYTRUDA [Suspect]
     Active Substance: PEMBROLIZUMAB
     Indication: Renal cell carcinoma stage IV
     Dosage: DOSE DESCRIPTION : EVERY THREE WEEKS
     Route: 042
     Dates: start: 20210809, end: 202510
  2. TKI 258 [Concomitant]
  3. CABOMETYX [Concomitant]
     Active Substance: CABOZANTINIB S-MALATE

REACTIONS (8)
  - Malignant neoplasm progression [Unknown]
  - Tooth restoration [Unknown]
  - Incorrect product administration duration [Unknown]
  - Insomnia [Unknown]
  - Rash [Not Recovered/Not Resolved]
  - Pruritus [Not Recovered/Not Resolved]
  - Blood potassium increased [Unknown]
  - Alopecia [Unknown]
